FAERS Safety Report 4636375-8 (Version None)
Quarter: 2005Q2

REPORT INFORMATION
  Report Type: 
  Country: None (occurrence: None)
  Receive Date: 20050415
  Receipt Date: 20050222
  Transmission Date: 20051028
  Serious: Yes (Hospitalization, Other)
  Sender: FDA-Public Use
  Company Number: US-BRISTOL-MYERS SQUIBB COMPANY-12882007

PATIENT
  Sex: Female

DRUGS (5)
  1. PARAPLATIN [Suspect]
     Route: 042
     Dates: start: 20050218, end: 20050218
  2. ANZEMET [Concomitant]
     Indication: PREMEDICATION
  3. ZANTAC [Concomitant]
     Indication: PREMEDICATION
  4. BENADRYL [Concomitant]
     Indication: PREMEDICATION
  5. DECADRON [Concomitant]
     Indication: PREMEDICATION

REACTIONS (3)
  - COUGH [None]
  - DYSPNOEA [None]
  - ERYTHEMA [None]
